FAERS Safety Report 6699322-3 (Version None)
Quarter: 2010Q2

REPORT INFORMATION
  Report Type: 
  Country: None (occurrence: None)
  Receive Date: 20100426
  Receipt Date: 20100412
  Transmission Date: 20101027
  Serious: Yes (Hospitalization)
  Sender: FDA-Public Use
  Company Number: GB-001843

PATIENT
  Age: 39 Year
  Sex: Female

DRUGS (3)
  1. DESMOPRESSIN ACETATE [Suspect]
     Indication: DIABETES INSIPIDUS
     Dosage: 300 UG ORAL
     Route: 048
     Dates: start: 20100310, end: 20100318
  2. CHLORPHENIRAMINE MALEATE [Concomitant]
  3. ZOPICLONE(ZOPICLONE) [Concomitant]

REACTIONS (1)
  - RASH MACULAR [None]
